FAERS Safety Report 16768965 (Version 1)
Quarter: 2019Q3

REPORT INFORMATION
  Report Type: Spontaneous
  Country: US (occurrence: US)
  Receive Date: 20190903
  Receipt Date: 20190903
  Transmission Date: 20191005
  Serious: No
  Sender: FDA-Public Use
  Company Number: US-ARRAY-2019-05905

PATIENT

DRUGS (2)
  1. MEKTOVI [Suspect]
     Active Substance: BINIMETINIB
     Dosage: UNK
  2. MEKTOVI [Suspect]
     Active Substance: BINIMETINIB
     Indication: MALIGNANT PERITONEAL NEOPLASM
     Dosage: 30 MG, BID
     Route: 048
     Dates: start: 20190607

REACTIONS (3)
  - Product use in unapproved indication [Unknown]
  - Confusional state [Not Recovered/Not Resolved]
  - Tremor [Not Recovered/Not Resolved]

NARRATIVE: CASE EVENT DATE: 20190607
